FAERS Safety Report 18512306 (Version 1)
Quarter: 2020Q4

REPORT INFORMATION
  Report Type: Spontaneous
  Country: DE (occurrence: DE)
  Receive Date: 20201117
  Receipt Date: 20201117
  Transmission Date: 20210114
  Serious: Yes (Hospitalization, Other)
  Sender: FDA-Public Use
  Company Number: DE-TEVA-2020-DE-1848302

PATIENT
  Age: 75 Year
  Sex: Male

DRUGS (11)
  1. METFORMIN [Concomitant]
     Active Substance: METFORMIN HYDROCHLORIDE
     Dosage: 2000 MILLIGRAM DAILY; 1-0-1-0
  2. TROMCARDIN [Concomitant]
     Active Substance: MAGNESIUM ASPARTATE\POTASSIUM ASPARTATE
     Dosage: 2 DOSAGE FORMS DAILY; 1-0-1-0
  3. XELEVIA [Concomitant]
     Active Substance: SITAGLIPTIN PHOSPHATE
     Dosage: 100 MILLIGRAM DAILY;  1-0-0-0
  4. CARVEDILOL. [Suspect]
     Active Substance: CARVEDILOL
     Dosage: 25 MG, 0.25-0-0.5-0
  5. AMLODIPIN [Concomitant]
     Active Substance: AMLODIPINE BESYLATE
     Dosage: 10 MILLIGRAM DAILY;  0-0-1-0
  6. SIMVASTATIN. [Concomitant]
     Active Substance: SIMVASTATIN
     Dosage: 30 MILLIGRAM DAILY; 0-0-1-0
  7. PHENPROCOUMON [Concomitant]
     Active Substance: PHENPROCOUMON
     Dosage: 3 MG, ACCORDING TO INR
  8. REPAGLINID [Concomitant]
     Active Substance: REPAGLINIDE
     Dosage: 0.5 MG, AS NEEDED
  9. DUODART [Concomitant]
     Active Substance: DUTASTERIDE\TAMSULOSIN
     Dosage: 1 DOSAGE FORMS DAILY; 0.5|0.4 MG, 0-1-0-0
  10. BIPRETERAX [Concomitant]
     Active Substance: INDAPAMIDE\PERINDOPRIL
     Dosage: 1 DOSAGE FORMS DAILY; 5|1.25 MG, 1-0-0-0
  11. DEKRISTOL 20000I.E. [Concomitant]
     Dosage: 20000 IU | MONTH, 1X

REACTIONS (5)
  - Anaemia [Unknown]
  - Bradycardia [Unknown]
  - Performance status decreased [Unknown]
  - Bradyarrhythmia [Unknown]
  - Dyspnoea exertional [Unknown]
